FAERS Safety Report 6003942-9 (Version None)
Quarter: 2008Q4

REPORT INFORMATION
  Report Type: 
  Country: None (occurrence: None)
  Receive Date: 20081216
  Receipt Date: 20081211
  Transmission Date: 20090506
  Serious: Yes (Hospitalization, Other)
  Sender: FDA-Public Use
  Company Number: US-BRISTOL-MYERS SQUIBB COMPANY-14421838

PATIENT
  Age: 58 Year
  Sex: Male
  Weight: 66 kg

DRUGS (3)
  1. CISPLATIN [Suspect]
     Indication: LARYNGEAL CANCER
     Dosage: ADDITIONAL TREATMENT OFF PROTOCOL ON 20NOV08.
     Dates: start: 20081029, end: 20081029
  2. RADIATION THERAPY [Suspect]
     Indication: LARYNGEAL CANCER
     Dosage: 1DF=2800CGY EXTERNAL BEAM,IMRT 13NOV08-LAST TREATMENT NO.OF FRACTIONS-14 NO.OF ELAPSED DAYS-14
     Dates: end: 20081113
  3. CIPRO [Concomitant]
     Indication: WOUND INFECTION
     Dates: start: 20081105

REACTIONS (6)
  - ANOREXIA [None]
  - INFECTION [None]
  - NEUTROPENIC INFECTION [None]
  - NEUTROPHIL COUNT DECREASED [None]
  - STOMATITIS [None]
  - WHITE BLOOD CELL COUNT DECREASED [None]
